FAERS Safety Report 12700307 (Version 1)
Quarter: 2016Q3

REPORT INFORMATION
  Report Type: Spontaneous
  Country: US (occurrence: US)
  Receive Date: 20160830
  Receipt Date: 20160830
  Transmission Date: 20161109
  Serious: No
  Sender: FDA-Public Use
  Company Number: US-SA-2015SA159329

PATIENT
  Age: 43 Year
  Sex: Female
  Weight: 60.78 kg

DRUGS (11)
  1. LACTOBACILLUS ACIDOPHILUS [Concomitant]
     Active Substance: LACTOBACILLUS ACIDOPHILUS
     Dates: start: 20120815
  2. NORMAL SALINE [Concomitant]
     Active Substance: SODIUM CHLORIDE
     Route: 042
     Dates: start: 20150727
  3. CALCIUM [Concomitant]
     Active Substance: CALCIUM
     Dates: start: 20120815
  4. IBUPROFEN. [Concomitant]
     Active Substance: IBUPROFEN
     Dates: start: 20150727
  5. BIOTIN [Concomitant]
     Active Substance: BIOTIN
     Dates: start: 20120815
  6. PRENATAL [Concomitant]
     Active Substance: VITAMINS
     Dates: start: 20120815
  7. DIPHENHYDRAMINE. [Concomitant]
     Active Substance: DIPHENHYDRAMINE
     Indication: ANAPHYLACTIC REACTION
     Dates: start: 20150727
  8. VITAMIN D [Concomitant]
     Active Substance: CHOLECALCIFEROL
     Dates: start: 20120815
  9. EPIPEN [Concomitant]
     Active Substance: EPINEPHRINE
     Indication: ANAPHYLACTIC REACTION
     Route: 030
     Dates: start: 20150727
  10. LMX 5 [Concomitant]
     Dates: start: 20150727
  11. FABRAZYME [Suspect]
     Active Substance: AGALSIDASE BETA
     Indication: LIPIDOSIS
     Route: 041
     Dates: start: 20120730

REACTIONS (2)
  - Stomatitis [Recovered/Resolved]
  - Bronchitis [Unknown]
